FAERS Safety Report 21826724 (Version 1)
Quarter: 2023Q1

REPORT INFORMATION
  Report Type: Report from Study
  Country: US (occurrence: US)
  Receive Date: 20230106
  Receipt Date: 20230106
  Transmission Date: 20230418
  Serious: No
  Sender: FDA-Public Use
  Company Number: US-ABBVIE-4224119

PATIENT
  Sex: Female

DRUGS (3)
  1. SKYRIZI [Suspect]
     Active Substance: RISANKIZUMAB-RZAA
     Indication: Psoriasis
     Dosage: 150MG
     Route: 058
     Dates: start: 20220801
  2. OTEZLA [Suspect]
     Active Substance: APREMILAST
     Indication: Product used for unknown indication
     Route: 065
  3. clobetasol topical [Concomitant]
     Indication: Product used for unknown indication
     Route: 065

REACTIONS (8)
  - Skin wound [Unknown]
  - Pruritus [Recovering/Resolving]
  - Skin fissures [Unknown]
  - Skin haemorrhage [Unknown]
  - Arthritis [Recovering/Resolving]
  - Drug ineffective [Unknown]
  - Furuncle [Unknown]
  - Psoriasis [Unknown]
